FAERS Safety Report 25923458 (Version 2)
Quarter: 2025Q4

REPORT INFORMATION
  Report Type: Report from Study
  Country: US (occurrence: US)
  Receive Date: 20251015
  Receipt Date: 20251204
  Transmission Date: 20260117
  Serious: No
  Sender: BIOGEN
  Company Number: US-BIOGEN-2025BI01326879

PATIENT
  Age: 31 Year
  Sex: Female

DRUGS (3)
  1. ZURZUVAE [Suspect]
     Active Substance: ZURANOLONE
     Indication: Perinatal depression
     Dosage: DOSAGE TEXT:TAKE 2 CAPSULES (50 MG) DAILY IN THE EVENING WITH FAT CONTAINING FOOD FOR 14 DAYS.
     Dates: start: 20251004, end: 20251009
  2. LEXAPRO [Concomitant]
     Active Substance: ESCITALOPRAM OXALATE
     Indication: Anxiety
  3. LEXAPRO [Concomitant]
     Active Substance: ESCITALOPRAM OXALATE
     Indication: Depression

REACTIONS (5)
  - Alcoholism [Unknown]
  - Insomnia [Unknown]
  - Anxiety [Unknown]
  - Loss of consciousness [Unknown]
  - Depression [Unknown]

NARRATIVE: CASE EVENT DATE: 20251001
